FAERS Safety Report 7579994-1 (Version None)
Quarter: 2011Q2

REPORT INFORMATION
  Report Type: 
  Country: None (occurrence: None)
  Receive Date: 20110629
  Receipt Date: 20110622
  Transmission Date: 20111010
  Serious: Yes (Other)
  Sender: FDA-Public Use
  Company Number: FR-JNJFOC-20110611676

PATIENT
  Age: 46 Year
  Sex: Female

DRUGS (3)
  1. ECONAZOLE NITRATE [Suspect]
     Indication: FUNGAL INFECTION
     Route: 065
  2. MONAZOL [Concomitant]
     Indication: FUNGAL INFECTION
     Route: 065
  3. ECONAZOLE NITRATE [Suspect]
     Route: 065

REACTIONS (4)
  - BURNING SENSATION [None]
  - ESCHERICHIA VAGINITIS [None]
  - PRURITUS [None]
  - DYSURIA [None]
